FAERS Safety Report 13280525 (Version 2)
Quarter: 2017Q1

REPORT INFORMATION
  Report Type: Spontaneous
  Country: US (occurrence: US)
  Receive Date: 20170301
  Receipt Date: 20170313
  Transmission Date: 20170428
  Serious: No
  Sender: FDA-Public Use
  Company Number: US-009507513-1702USA011259

PATIENT
  Age: 26 Year
  Sex: Female
  Weight: 70.25 kg

DRUGS (2)
  1. NEXPLANON [Suspect]
     Active Substance: ETONOGESTREL
     Dosage: 68 MG (1 ROD) THREE YEARS
     Route: 059
     Dates: start: 20170223, end: 20170223
  2. NEXPLANON [Suspect]
     Active Substance: ETONOGESTREL
     Dosage: 68 MG (1 ROD) THREE YEARS
     Route: 059
     Dates: start: 20170223, end: 20170223

REACTIONS (2)
  - Device difficult to use [Not Recovered/Not Resolved]
  - Product quality issue [Unknown]

NARRATIVE: CASE EVENT DATE: 20170223
